FAERS Safety Report 8237043-6 (Version None)
Quarter: 2012Q1

REPORT INFORMATION
  Report Type: 
  Country: None (occurrence: None)
  Receive Date: 20120327
  Receipt Date: 20120323
  Transmission Date: 20120608
  Serious: Yes (Death)
  Sender: FDA-Public Use
  Company Number: PHHY2012FR025258

PATIENT
  Sex: Male

DRUGS (4)
  1. IMOVANE [Concomitant]
  2. TRAMADOL HCL [Concomitant]
  3. GLEEVEC [Suspect]
     Indication: OESOPHAGEAL ADENOCARCINOMA
     Route: 048
     Dates: start: 20120105, end: 20120116
  4. PRIMPERAN TAB [Concomitant]

REACTIONS (4)
  - PERICARDIAL EFFUSION [None]
  - RENAL FAILURE ACUTE [None]
  - BLOOD CREATININE INCREASED [None]
  - PLEURAL EFFUSION [None]
